FAERS Safety Report 19035004 (Version 1)
Quarter: 2021Q1

REPORT INFORMATION
  Report Type: Spontaneous
  Country: JP (occurrence: JP)
  Receive Date: 20210320
  Receipt Date: 20210320
  Transmission Date: 20210420
  Serious: Yes (Other)
  Sender: FDA-Public Use
  Company Number: NVSC2021JP064424

PATIENT

DRUGS (1)
  1. RECLAST [Suspect]
     Active Substance: ZOLEDRONIC ACID
     Indication: OSTEOPOROSIS
     Dosage: 5 MG, Q12MO
     Route: 041

REACTIONS (6)
  - Fracture [Unknown]
  - Osteonecrosis of jaw [Unknown]
  - Diarrhoea [Unknown]
  - Acute phase reaction [Unknown]
  - Oedema peripheral [Unknown]
  - Gastric disorder [Unknown]
